FAERS Safety Report 8774745 (Version 1)
Quarter: 2012Q4

REPORT INFORMATION
  Report Type: 
  Country: US (occurrence: US)
  Receive Date: 20120910
  Receipt Date: 20120910
  Transmission Date: 20130627
  Serious: No
  Sender: FDA-Public Use
  Company Number: US-PFIZER INC-2012221492

PATIENT
  Age: 30 Year
  Sex: Male
  Weight: 90.7 kg

DRUGS (4)
  1. CLONAZEPAM [Concomitant]
     Indication: ANXIETY
     Dosage: 2 mg daily at night
  2. CLONAZEPAM [Concomitant]
     Indication: OBSESSIVE-COMPULSIVE DISORDER
  3. PRISTIQ [Suspect]
     Indication: ANXIETY
     Dosage: 100 mg, daily
     Route: 048
     Dates: start: 2012
  4. PRISTIQ [Suspect]
     Indication: OBSESSIVE-COMPULSIVE DISORDER

REACTIONS (2)
  - Medication residue [Unknown]
  - Product solubility abnormal [Unknown]
